FAERS Safety Report 14061977 (Version 3)
Quarter: 2019Q1

REPORT INFORMATION
  Report Type: Spontaneous
  Country: FR (occurrence: FR)
  Receive Date: 20171009
  Receipt Date: 20190320
  Transmission Date: 20190417
  Serious: Yes (Other)
  Sender: FDA-Public Use
  Company Number: FR-ACCORD-059603

PATIENT
  Age: 65 Year
  Sex: Female

DRUGS (8)
  1. CETUXIMAB. [Concomitant]
     Active Substance: CETUXIMAB
     Indication: METASTASES TO LYMPH NODES
     Dosage: ALSO RECEIVED ADDITIONALLY
     Dates: start: 201206
  2. FLUOROURACIL. [Suspect]
     Active Substance: FLUOROURACIL
     Indication: METASTASES TO LYMPH NODES
     Dosage: FOLFIRI-CETUXIMAB, ?ALSO RECEIVED ADDITIONALLY
     Dates: start: 201206
  3. IRINOTECAN [Suspect]
     Active Substance: IRINOTECAN
     Indication: METASTASES TO LYMPH NODES
     Dosage: PREVIOUSLY RECEIVED FOLFIRI-CETUXIMAB IN 2012.
  4. FOLINIC ACID [Concomitant]
     Active Substance: LEUCOVORIN
     Dates: start: 2012
  5. CETUXIMAB. [Concomitant]
     Active Substance: CETUXIMAB
     Dates: start: 2012
  6. FOLINIC ACID [Concomitant]
     Active Substance: LEUCOVORIN
     Indication: METASTASES TO LYMPH NODES
     Dates: start: 201206
  7. RALTITREXED [Concomitant]
     Active Substance: RALTITREXED
     Indication: METASTASES TO LYMPH NODES
  8. FLUOROURACIL. [Suspect]
     Active Substance: FLUOROURACIL
     Dates: start: 2012

REACTIONS (3)
  - Cell death [Unknown]
  - Diarrhoea [Unknown]
  - Stress cardiomyopathy [Unknown]

NARRATIVE: CASE EVENT DATE: 2012
